FAERS Safety Report 8235537-0 (Version None)
Quarter: 2012Q1

REPORT INFORMATION
  Report Type: 
  Country: None (occurrence: None)
  Receive Date: 20120323
  Receipt Date: 20120314
  Transmission Date: 20120608
  Serious: Yes (Hospitalization)
  Sender: FDA-Public Use
  Company Number: JPI-P-020331

PATIENT
  Age: 49 Year
  Sex: Male
  Weight: 102.0593 kg

DRUGS (8)
  1. LORAZEPAM [Concomitant]
  2. METOCLOPRAMIDE [Concomitant]
  3. OMEPRAZOLE [Concomitant]
  4. SIMVASTATIN [Concomitant]
  5. AMLODIPINE BESYLATE [Concomitant]
  6. XYREM [Suspect]
     Indication: CATAPLEXY
     Dosage: ORAL ; 9 GM (4.5 GM,2 IN 1 D),ORAL
     Route: 048
     Dates: start: 20090301
  7. ARMODAFINIL [Concomitant]
  8. VALACYCLOVIR HYDROCHLORIDE [Concomitant]

REACTIONS (3)
  - NERVOUSNESS [None]
  - DEPRESSION [None]
  - ANXIETY [None]
